FAERS Safety Report 4328725-7 (Version None)
Quarter: 2004Q1

REPORT INFORMATION
  Report Type: 
  Country: None (occurrence: None)
  Receive Date: 20040331
  Receipt Date: 20040315
  Transmission Date: 20041129
  Serious: Yes (Other)
  Sender: FDA-Public Use
  Company Number: CHNY2004GB00496

PATIENT
  Age: 70 Year
  Sex: Female

DRUGS (11)
  1. FERROUS SULFATE TAB [Suspect]
  2. CALCIUM CARBONATE, CALCIUM LACTATE GLUCONATE (NCH) (CALCIUM LACTATE GL [Suspect]
  3. CELECOXIB (CELECOXIB) [Suspect]
     Dosage: 100-200 MG DAILY
     Dates: start: 20031215, end: 20040101
  4. ETORICOXIB(ETORICOXIB) [Suspect]
     Dosage: 90 MG, QD, ORAL
     Route: 048
     Dates: start: 20030601, end: 20030701
  5. THYROXINE (LEVOTHYROXINE SODIUM) [Suspect]
     Dosage: 0.1 MG
     Dates: start: 19990101
  6. ACETAMINOPHEN [Concomitant]
  7. LANSOPRAZOLE [Concomitant]
  8. RANITIDINE [Concomitant]
  9. TRAMADOL HCL [Concomitant]
  10. CO-PROXAMOL (DEXTROPROPOXYPHENE HYDROCHLORIDE) [Concomitant]
  11. ADCAL-D3 [Concomitant]

REACTIONS (12)
  - CONDITION AGGRAVATED [None]
  - DIFFICULTY IN WALKING [None]
  - DRUG INTERACTION [None]
  - DYSGRAPHIA [None]
  - FLUID RETENTION [None]
  - MUSCLE CRAMP [None]
  - MUSCULAR WEAKNESS [None]
  - MYALGIA [None]
  - OSTEOARTHRITIS [None]
  - PAIN IN EXTREMITY [None]
  - SLEEP DISORDER [None]
  - SOMNOLENCE [None]
